FAERS Safety Report 5773627-2 (Version None)
Quarter: 2008Q2

REPORT INFORMATION
  Report Type: 
  Country: None (occurrence: None)
  Receive Date: 20080616
  Receipt Date: 20080418
  Transmission Date: 20081010
  Serious: No
  Sender: FDA-Public Use
  Company Number: US-BAYER-200811534BCC

PATIENT
  Sex: Female

DRUGS (2)
  1. FINACEA [Suspect]
     Indication: ROSACEA
     Route: 061
  2. GALDERMA METROLGEL 1% [Suspect]
     Indication: ROSACEA

REACTIONS (1)
  - ROSACEA [None]
